FAERS Safety Report 5431218-7 (Version None)
Quarter: 2007Q3

REPORT INFORMATION
  Report Type: 
  Country: None (occurrence: None)
  Receive Date: 20070830
  Receipt Date: 20070403
  Transmission Date: 20080115
  Serious: No
  Sender: FDA-Public Use
  Company Number: A0645775A

PATIENT
  Age: 43 Year
  Sex: Female

DRUGS (2)
  1. WELLBUTRIN XL [Suspect]
     Indication: MOOD SWINGS
     Dosage: 300MG PER DAY
     Route: 048
  2. ALEVE [Concomitant]

REACTIONS (1)
  - ALOPECIA [None]
